FAERS Safety Report 5144696-8 (Version None)
Quarter: 2006Q4

REPORT INFORMATION
  Report Type: 
  Country: None (occurrence: None)
  Receive Date: 20061031
  Receipt Date: 20061018
  Transmission Date: 20070319
  Serious: No
  Sender: FDA-Public Use
  Company Number: 2006PV021511

PATIENT
  Age: 55 Year
  Sex: Male
  Weight: 129.2752 kg

DRUGS (16)
  1. BYETTA [Suspect]
     Indication: DIABETES MELLITUS NON-INSULIN-DEPENDENT
     Dosage: 10 MCG BID SC ; 5 MCG BID SC
     Route: 058
     Dates: start: 20050801, end: 20050101
  2. BYETTA [Suspect]
     Indication: DIABETES MELLITUS NON-INSULIN-DEPENDENT
     Dosage: 10 MCG BID SC ; 5 MCG BID SC
     Route: 058
     Dates: start: 20050101
  3. ASPIRIN [Concomitant]
  4. ADVICOR [Concomitant]
  5. TOPROL-XL [Concomitant]
  6. ZESTRIL [Concomitant]
  7. LASIX [Concomitant]
  8. K-DUR 10 [Concomitant]
  9. AMARYL [Concomitant]
  10. TRICOR [Concomitant]
  11. LANOXIN [Concomitant]
  12. ACTOS [Concomitant]
  13. SPIRONOLACTONE [Concomitant]
  14. NORVASC [Concomitant]
  15. GLUCOPHAGE [Concomitant]
  16. PLAVIX [Concomitant]

REACTIONS (7)
  - BLOOD GLUCOSE DECREASED [None]
  - CARDIAC STRESS TEST ABNORMAL [None]
  - DECREASED APPETITE [None]
  - FOOD AVERSION [None]
  - HYPERHIDROSIS [None]
  - NERVOUSNESS [None]
  - WEIGHT DECREASED [None]
